FAERS Safety Report 5478722-3 (Version None)
Quarter: 2007Q4

REPORT INFORMATION
  Report Type: 
  Country: None (occurrence: None)
  Receive Date: 20071005
  Receipt Date: 20070928
  Transmission Date: 20080405
  Serious: Yes (Hospitalization, Disabling)
  Sender: FDA-Public Use
  Company Number: FR-BOEHRINGER INGELHEIM PHARMACEUTICALS, INC.-2007-FF-00949FF

PATIENT
  Sex: Male

DRUGS (4)
  1. PERSANTINE [Suspect]
     Route: 048
     Dates: start: 20051105, end: 20061105
  2. KARDEGIC [Concomitant]
     Route: 048
     Dates: end: 20061105
  3. VASTAREL [Concomitant]
     Route: 048
     Dates: end: 20061105
  4. TEMESTA [Concomitant]
     Route: 048

REACTIONS (1)
  - CEREBRAL HAEMORRHAGE [None]
